FAERS Safety Report 9338453 (Version 2)
Quarter: 2014Q2

REPORT INFORMATION
  Report Type: Spontaneous
  Country: CN (occurrence: CN)
  Receive Date: 20130610
  Receipt Date: 20140603
  Transmission Date: 20141212
  Serious: Yes (Other)
  Sender: FDA-Public Use
  Company Number: CN-JNJFOC-20130523249

PATIENT
  Age: 14 Year
  Sex: Male
  Weight: 32 kg

DRUGS (6)
  1. REMICADE [Suspect]
     Indication: ANKYLOSING SPONDYLITIS
     Dosage: APPROXIMATE TOTAL NUMBER OF INFUSIONS RECEIVED WAS 1400 MG
     Route: 041
     Dates: start: 20120409, end: 20130530
  2. REMICADE [Suspect]
     Indication: ANKYLOSING SPONDYLITIS
     Route: 041
     Dates: start: 20130530, end: 20130530
  3. METHOTREXATE [Suspect]
     Indication: ANKYLOSING SPONDYLITIS
     Route: 065
     Dates: start: 20120406, end: 20130530
  4. POLYPEPTIDE [Concomitant]
     Indication: PREMEDICATION
     Dosage: IV DRIP
     Route: 042
     Dates: start: 20120406
  5. SODIUM [Concomitant]
     Indication: PREMEDICATION
     Dosage: IV DRIP
     Route: 042
     Dates: start: 20120406
  6. IBUPROFEN [Concomitant]
     Indication: PREMEDICATION
     Route: 048
     Dates: start: 20120406

REACTIONS (5)
  - Infusion related reaction [Recovered/Resolved]
  - Laryngeal oedema [Recovered/Resolved]
  - Dyspnoea [Recovered/Resolved]
  - Flushing [Recovered/Resolved]
  - Rash [Recovered/Resolved]
